FAERS Safety Report 6130726-3 (Version None)
Quarter: 2009Q1

REPORT INFORMATION
  Report Type: 
  Country: None (occurrence: None)
  Receive Date: 20090325
  Receipt Date: 20090317
  Transmission Date: 20090719
  Serious: Yes (Other)
  Sender: FDA-Public Use
  Company Number: JP-JNJFOC-20090305480

PATIENT
  Sex: Female

DRUGS (3)
  1. RISPERDAL [Suspect]
     Indication: DRUG USE FOR UNKNOWN INDICATION
     Route: 048
  2. AMOXAN [Concomitant]
     Route: 048
  3. TOFRANIL [Concomitant]
     Route: 065

REACTIONS (4)
  - CONSTIPATION [None]
  - EYE DISORDER [None]
  - GAIT DISTURBANCE [None]
  - URINARY RETENTION [None]
